FAERS Safety Report 13194741 (Version 1)
Quarter: 2017Q1

REPORT INFORMATION
  Report Type: Spontaneous
  Country: US (occurrence: US)
  Receive Date: 20170207
  Receipt Date: 20170207
  Transmission Date: 20170428
  Serious: No
  Sender: FDA-Public Use
  Company Number: US-JAZZ-2016-US-023256

PATIENT
  Sex: Male

DRUGS (1)
  1. PRIALT [Suspect]
     Active Substance: ZICONOTIDE ACETATE
     Indication: PRODUCT USED FOR UNKNOWN INDICATION
     Dosage: UNK, QH
     Route: 037

REACTIONS (7)
  - Tremor [Recovered/Resolved]
  - Musculoskeletal disorder [Unknown]
  - Bunion operation [Recovered/Resolved]
  - Hallucination, auditory [Unknown]
  - Complex regional pain syndrome [Unknown]
  - Muscle spasms [Recovered/Resolved]
  - Pain [Unknown]
